FAERS Safety Report 6970006-7 (Version None)
Quarter: 2010Q3

REPORT INFORMATION
  Report Type: 
  Country: None (occurrence: None)
  Receive Date: 20100908
  Receipt Date: 20100901
  Transmission Date: 20110219
  Serious: Yes (Death, Hospitalization, Other)
  Sender: FDA-Public Use
  Company Number: JP-ELI_LILLY_AND_COMPANY-JP201003003572

PATIENT
  Sex: Male
  Weight: 41.8 kg

DRUGS (14)
  1. ALIMTA [Suspect]
     Indication: LUNG ADENOCARCINOMA RECURRENT
     Dosage: 650 MG, OTHER
     Route: 042
     Dates: start: 20090731, end: 20090731
  2. PANVITAN [Concomitant]
     Dosage: 1 G, DAILY (1/D)
     Route: 048
     Dates: start: 20090717, end: 20090813
  3. METHYCOBAL [Concomitant]
     Dosage: 1 MG, OTHER
     Route: 030
     Dates: start: 20090717, end: 20090717
  4. NORVASC [Concomitant]
     Indication: HYPERTENSION
     Dosage: 5 MG, DAILY (1/D)
     Route: 048
     Dates: end: 20090812
  5. DIAZEPAM [Concomitant]
     Indication: DIZZINESS
     Dosage: 2 MG, 3/D
     Route: 048
     Dates: end: 20090812
  6. TAKEPRON [Concomitant]
     Indication: GASTRITIS PROPHYLAXIS
     Dosage: 30 MG, DAILY (1/D)
     Route: 048
     Dates: start: 20081220, end: 20090812
  7. NOVAMIN [Concomitant]
     Indication: PROPHYLAXIS OF NAUSEA AND VOMITING
     Dosage: 5 MG, 3/D
     Route: 048
     Dates: start: 20090204, end: 20090812
  8. OXYCONTIN [Concomitant]
     Indication: PAIN
     Dosage: 15 MG, 3/D
     Route: 048
     Dates: start: 20090204, end: 20090811
  9. GASMOTIN [Concomitant]
     Indication: DYSGEUSIA
     Dosage: 5 MG, 3/D
     Route: 048
     Dates: start: 20090403, end: 20090812
  10. METHYCOBAL [Concomitant]
     Indication: HYPOAESTHESIA
     Dosage: 500 UG, 3/D
     Route: 048
     Dates: start: 20090417, end: 20090812
  11. DEPAKENE [Concomitant]
     Indication: PAIN
     Dosage: 200 MG, 2/D
     Route: 048
     Dates: start: 20090529, end: 20090812
  12. LAXOBERON [Concomitant]
     Indication: CONSTIPATION
     Dosage: 15 D/F, DAILY (1/D)
     Route: 048
     Dates: start: 20090605, end: 20090813
  13. NAIXAN [Concomitant]
     Indication: PAIN
     Dosage: 200 MG, 3/D
     Route: 048
     Dates: start: 20090626, end: 20090812
  14. LEVOFLOXACIN [Concomitant]
     Indication: INFECTION PROPHYLAXIS
     Dosage: 200 MG, 2/D
     Route: 048
     Dates: start: 20090807, end: 20090810

REACTIONS (5)
  - ANAEMIA [None]
  - INTERSTITIAL LUNG DISEASE [None]
  - NEUTROPENIA [None]
  - ORAL CANDIDIASIS [None]
  - THROMBOCYTOPENIA [None]
